FAERS Safety Report 5821021-8 (Version None)
Quarter: 2008Q3

REPORT INFORMATION
  Report Type: 
  Country: None (occurrence: None)
  Receive Date: 20080721
  Receipt Date: 20080709
  Transmission Date: 20090109
  Serious: Yes (Hospitalization)
  Sender: FDA-Public Use
  Company Number: 2008-01558

PATIENT
  Age: 64 Year
  Sex: Male
  Weight: 106 kg

DRUGS (11)
  1. VELCADE [Suspect]
     Indication: BRONCHIOLOALVEOLAR CARCINOMA
     Dosage: 1.3 MG/M2
     Dates: start: 20080204
  2. TOPOTECAN [Concomitant]
  3. TOPROL-XL [Concomitant]
  4. ADVAIR (FLUTICASONE PROPIONTAE, SALMETEROL XINAFOATE) [Concomitant]
  5. EZETIMIBE [Concomitant]
  6. LIPIOR (ATORVASTATIN) [Concomitant]
  7. DIOVAN (VALSARTATAN) [Concomitant]
  8. HYDROCHLOROTHIZIDE (HYDROCHLOROTHIAZIDE) [Concomitant]
  9. ACIPHEX [Concomitant]
  10. FLONASE [Concomitant]
  11. VERAPAMIL [Concomitant]

REACTIONS (17)
  - ANAEMIA [None]
  - BRONCHOPLEURAL FISTULA [None]
  - BRONCHOSPASM [None]
  - COUGH [None]
  - DYSPNOEA [None]
  - FATIGUE [None]
  - HYPERGLYCAEMIA [None]
  - HYPOXIA [None]
  - LEUKOCYTOSIS [None]
  - LUNG INFILTRATION [None]
  - OEDEMA PERIPHERAL [None]
  - PERIPHERAL SENSORY NEUROPATHY [None]
  - PNEUMONIA [None]
  - PNEUMOTHORAX [None]
  - SUBCUTANEOUS EMPHYSEMA [None]
  - TACHYCARDIA [None]
  - THROMBOCYTOPENIA [None]
